FAERS Safety Report 4320503-8 (Version None)
Quarter: 2004Q1

REPORT INFORMATION
  Report Type: 
  Country: None (occurrence: None)
  Receive Date: 20040322
  Receipt Date: 20040311
  Transmission Date: 20041129
  Serious: Yes (Other)
  Sender: FDA-Public Use
  Company Number: 200410888JP

PATIENT
  Age: 1 Year
  Sex: Male

DRUGS (6)
  1. CLAFORAN [Suspect]
     Indication: MENINGITIS BACTERIAL
  2. PIPC [Concomitant]
     Indication: MENINGITIS BACTERIAL
  3. CEFPIROME SULFATE [Concomitant]
     Indication: MENINGITIS BACTERIAL
  4. CEFTRIAXONE SODIUM [Concomitant]
     Indication: MENINGITIS BACTERIAL
  5. PANIPENEM [Concomitant]
     Indication: MENINGITIS BACTERIAL
  6. CHLORAMPHENICOL [Concomitant]
     Indication: MENINGITIS BACTERIAL

REACTIONS (3)
  - DRUG INEFFECTIVE [None]
  - LYMPHOCYTE STIMULATION TEST POSITIVE [None]
  - MENINGITIS ASEPTIC [None]
